FAERS Safety Report 13332607 (Version 2)
Quarter: 2017Q2

REPORT INFORMATION
  Report Type: Spontaneous
  Country: JP (occurrence: JP)
  Receive Date: 20170314
  Receipt Date: 20170511
  Transmission Date: 20170830
  Serious: Yes (Life-Threatening, Hospitalization, Other)
  Sender: FDA-Public Use
  Company Number: JP-ELI_LILLY_AND_COMPANY-JP201703004939

PATIENT
  Age: 67 Year
  Sex: Male
  Weight: 68 kg

DRUGS (12)
  1. WARFARIN [Concomitant]
     Active Substance: WARFARIN
     Indication: CARDIAC DISORDER
     Dosage: 1.75 MG, DAILY
     Route: 048
  2. NEXIUM [Concomitant]
     Active Substance: ESOMEPRAZOLE MAGNESIUM
     Indication: GASTRITIS
     Dosage: 20 MG, DAILY
     Route: 048
     Dates: end: 20170303
  3. LEVEMIR [Concomitant]
     Active Substance: INSULIN DETEMIR
     Indication: DIABETES MELLITUS
     Route: 058
  4. BAYASPIRIN [Concomitant]
     Active Substance: ASPIRIN
     Indication: CARDIAC DISORDER
     Dosage: 100 MG, DAILY
     Route: 048
  5. CRESTOR [Concomitant]
     Active Substance: ROSUVASTATIN CALCIUM
     Indication: CARDIAC DISORDER
     Dosage: 2.5 MG, DAILY
     Route: 048
  6. FUROSEMIDE. [Concomitant]
     Active Substance: FUROSEMIDE
     Indication: CARDIAC DISORDER
     Dosage: 20 MG, DAILY
     Route: 048
  7. SAMSCA [Concomitant]
     Active Substance: TOLVAPTAN
     Indication: CARDIAC DISORDER
     Dosage: 7.5 MG, DAILY
     Route: 048
     Dates: end: 20170329
  8. BISOPROLOL FUMARATE. [Concomitant]
     Active Substance: BISOPROLOL FUMARATE
     Indication: CARDIAC DISORDER
     Dosage: 1.25 MG, DAILY
     Route: 048
  9. CLOPIDOGREL [Concomitant]
     Active Substance: CLOPIDOGREL BISULFATE
     Indication: CARDIAC DISORDER
     Dosage: 75 MG, DAILY
     Route: 048
  10. ERBITUX [Suspect]
     Active Substance: CETUXIMAB
     Indication: OROPHARYNGEAL CANCER
     Dosage: 250 MG/M2, WEEKLY (1/W)
     Route: 042
     Dates: start: 20170123, end: 20170220
  11. GOODMIN [Concomitant]
     Active Substance: BROTIZOLAM
     Indication: INSOMNIA
     Dosage: .25 MG, DAILY
     Route: 048
  12. FEBURIC [Concomitant]
     Active Substance: FEBUXOSTAT
     Indication: GOUT
     Dosage: 20 MG, DAILY
     Route: 048
     Dates: end: 20170414

REACTIONS (12)
  - Hypothalamo-pituitary disorder [Recovered/Resolved]
  - General physical health deterioration [Recovered/Resolved]
  - Staphylococcal infection [Unknown]
  - Procalcitonin increased [Unknown]
  - Neutrophil count decreased [Recovered/Resolved]
  - Fracture [Recovering/Resolving]
  - Contusion [Recovering/Resolving]
  - Cytokine storm [Unknown]
  - Agranulocytosis [Recovered/Resolved]
  - Feeding disorder [Unknown]
  - Fall [Recovering/Resolving]
  - Device related infection [Unknown]

NARRATIVE: CASE EVENT DATE: 20170222
